FAERS Safety Report 9999709 (Version 1)
Quarter: 2014Q1

REPORT INFORMATION
  Report Type: Spontaneous
  Country: US (occurrence: US)
  Receive Date: 20140312
  Receipt Date: 20140312
  Transmission Date: 20141002
  Serious: No
  Sender: FDA-Public Use
  Company Number: US-BAYER-2014-037153

PATIENT
  Age: 74 Year
  Sex: Female
  Weight: 103 kg

DRUGS (4)
  1. ALEVE CAPLET [Suspect]
     Indication: ANALGESIC THERAPY
     Dosage: 1 DF, PRN
     Route: 048
     Dates: end: 20140306
  2. BYSTOLIC [Concomitant]
  3. POTASSIUM [Concomitant]
  4. LASIX [Concomitant]

REACTIONS (3)
  - Lip swelling [Not Recovered/Not Resolved]
  - Paraesthesia oral [Not Recovered/Not Resolved]
  - Intentional drug misuse [None]
